FAERS Safety Report 10722399 (Version 1)
Quarter: 2015Q1

REPORT INFORMATION
  Report Type: Spontaneous
  Country: US (occurrence: US)
  Receive Date: 20150119
  Receipt Date: 20150119
  Transmission Date: 20150721
  Serious: Yes (Other)
  Sender: FDA-Public Use
  Company Number: US-GILEAD-2015-0132023

PATIENT
  Sex: Male

DRUGS (3)
  1. RANEXA [Suspect]
     Active Substance: RANOLAZINE
     Dosage: 1000 MG, UNK
     Route: 065
     Dates: start: 20150109
  2. RANEXA [Suspect]
     Active Substance: RANOLAZINE
     Indication: PRODUCT USED FOR UNKNOWN INDICATION
     Dosage: 500 MG, BID
     Route: 065
     Dates: start: 2013, end: 20150108
  3. RANEXA [Suspect]
     Active Substance: RANOLAZINE
     Dosage: 500 MG, BID
     Route: 065
     Dates: start: 201501

REACTIONS (9)
  - Stent placement [Unknown]
  - Angina pectoris [Unknown]
  - Nausea [Recovered/Resolved]
  - Gait disturbance [Unknown]
  - Motion sickness [Recovered/Resolved]
  - Movement disorder [Unknown]
  - Dizziness [Unknown]
  - Feeling abnormal [Unknown]
  - Retching [Recovered/Resolved]

NARRATIVE: CASE EVENT DATE: 201404
